FAERS Safety Report 25785220 (Version 1)
Quarter: 2025Q3

REPORT INFORMATION
  Report Type: Report from Study
  Country: EU (occurrence: EU)
  Receive Date: 20250910
  Receipt Date: 20250910
  Transmission Date: 20251020
  Serious: Yes (Other)
  Sender: AMGEN
  Company Number: EU-AMGEN-ROUSL2025178464

PATIENT
  Sex: Female

DRUGS (1)
  1. KYPROLIS [Suspect]
     Active Substance: CARFILZOMIB
     Indication: Plasma cell myeloma refractory
     Route: 065

REACTIONS (2)
  - Heart failure with reduced ejection fraction [Unknown]
  - Hypertension [Unknown]

NARRATIVE: CASE EVENT DATE: 20250101
